FAERS Safety Report 20595494 (Version 1)
Quarter: 2022Q1

REPORT INFORMATION
  Report Type: Spontaneous
  Country: SE (occurrence: SE)
  Receive Date: 20220315
  Receipt Date: 20220315
  Transmission Date: 20220423
  Serious: Yes (Hospitalization, Other)
  Sender: FDA-Public Use
  Company Number: None

PATIENT
  Age: 58 Year
  Sex: Male

DRUGS (4)
  1. JARDIANCE [Suspect]
     Active Substance: EMPAGLIFLOZIN
     Indication: Product used for unknown indication
     Route: 048
     Dates: end: 20220224
  2. Risperidon Actavis  0,5 mg Filmdragerad tablett [Concomitant]
     Indication: Product used for unknown indication
     Dosage: FILMDRAGERAD TABLETT
     Route: 048
  3. Lithionit 42 mg  (6 mmol) Depottablett [Concomitant]
     Indication: Product used for unknown indication
     Dosage: 2 + 1?UNIT DOSE: 2?DEPOTTABLETT
     Route: 048
  4. TEGRETOL XR [Concomitant]
     Active Substance: CARBAMAZEPINE
     Indication: Product used for unknown indication
     Dosage: FOA: DEPOTTABLETT
     Route: 048

REACTIONS (1)
  - Diabetic ketoacidosis [Recovered/Resolved]

NARRATIVE: CASE EVENT DATE: 20220224
